FAERS Safety Report 5817677-6 (Version None)
Quarter: 2008Q3

REPORT INFORMATION
  Report Type: 
  Country: None (occurrence: None)
  Receive Date: 20080722
  Receipt Date: 20080717
  Transmission Date: 20090109
  Serious: Yes (Hospitalization)
  Sender: FDA-Public Use
  Company Number: KR-BRISTOL-MYERS SQUIBB COMPANY-14267611

PATIENT
  Age: 72 Year
  Sex: Male

DRUGS (25)
  1. CISPLATIN [Suspect]
     Indication: NON-SMALL CELL LUNG CANCER
     Dosage: INITIATED ON 29APR2008 TAKEN ON DAY1 AND 8, EVERY 3 WEEKS CUMULATIVE DOSE: 212 MG
     Route: 042
     Dates: start: 20080429, end: 20080603
  2. IRINOTECAN HCL [Suspect]
     Indication: NON-SMALL CELL LUNG CANCER
     Dosage: TAKEN ON DAY1 AND 8, EVERY 3 WEEKS CUMULATIVE DOSE: 420MG
     Route: 042
     Dates: start: 20080429, end: 20080603
  3. RADIATION THERAPY [Suspect]
     Indication: NON-SMALL CELL LUNG CANCER
     Dosage: 1 DOSAGE FORM = 200 CGY (60 GY/30 FX), RECEIVED 30 TIMES, CUMULATIVE DOSE-60 GY
     Dates: start: 20080428, end: 20080613
  4. ACETAMINOPHEN AND HYDROCODONE BITARTRATE [Concomitant]
     Dosage: 1 DOSAGE FORM = 1 TABLET HYDROCODONE 7.5MG/ACETAMINOPHEN 500MG
     Route: 048
     Dates: start: 20080603, end: 20080604
  5. ENSURE [Concomitant]
     Dosage: 1 DOSAGE FORM = 1 CAN OF 200 ML
     Route: 048
     Dates: start: 20080603, end: 20080616
  6. FAMOTIDINE [Concomitant]
     Dosage: TABLET FORM
     Route: 048
     Dates: start: 20080603, end: 20080616
  7. DURAGESIC [Concomitant]
     Dosage: 25 DOSAGE FORM =25 MCG/HR 0.5 ER
     Dates: start: 20080609, end: 20080609
  8. MORPHINE HCL [Concomitant]
     Route: 042
     Dates: start: 20080609, end: 20080609
  9. OXYCONTIN [Concomitant]
     Route: 048
     Dates: start: 20080609, end: 20080616
  10. AIRTAL [Concomitant]
     Dosage: 100 MG TABLET
     Route: 048
     Dates: start: 20080605, end: 20080617
  11. TANTUM MOUTHWASH [Concomitant]
     Dates: start: 20080609, end: 20080609
  12. GASTROPYLORE [Concomitant]
     Dosage: CYANOCOBALAMIN, GASTRIC MUCOSA EXTRACT
     Route: 048
     Dates: start: 20080605, end: 20080616
  13. CYANOCOBALAMIN [Concomitant]
     Route: 048
     Dates: start: 20080605, end: 20080616
  14. LIDOCAINE [Concomitant]
     Dosage: VISCOUS 2 % SOLUTION
     Dates: start: 20080609, end: 20080609
  15. MEGESTROL ACETATE [Concomitant]
     Route: 048
     Dates: start: 20080603, end: 20080616
  16. OMEPRAZOLE [Concomitant]
     Dosage: 40 MG VIAL
     Route: 042
     Dates: start: 20080609, end: 20080609
  17. PHAZYME [Concomitant]
     Dosage: COMPLEX INC: SIMETHICONE, UDCA, PANCREATIN
     Route: 048
     Dates: start: 20080603, end: 20080604
  18. ULCERMIN [Concomitant]
     Dosage: 2 DOSAGE FORM =  2 PACKS OF 1 G/15ML SUSPENSION
     Route: 048
     Dates: start: 20080603, end: 20080616
  19. MACPERAN [Concomitant]
     Dosage: INJECTION
     Route: 042
     Dates: start: 20080609, end: 20080609
  20. GRANISETRON HCL [Concomitant]
     Dosage: 1 DOSAGE FORM = 1 TABLET
     Route: 048
     Dates: start: 20070604, end: 20070607
  21. SODIUM BICARBONATE [Concomitant]
     Dosage: 2 DOSAGE FORM = 2 TABLETS
     Route: 048
     Dates: start: 20070604, end: 20070607
  22. URSODIOL [Concomitant]
     Dosage: 1 DOSAGE FORM = 1 TABLET
     Route: 048
     Dates: start: 20080604, end: 20080606
  23. MAGNESIUM HYDROXIDE TAB [Concomitant]
     Dosage: 1 DOSAGE FORM = 500 MG TABLET
     Route: 048
     Dates: start: 20080604, end: 20080607
  24. OMEPRAZOLE [Concomitant]
     Dates: start: 20080609, end: 20080616
  25. DEXTROSE [Concomitant]
     Dosage: 10 % IL+ MVH VIAL
     Dates: start: 20080612, end: 20080613

REACTIONS (1)
  - GASTROINTESTINAL HAEMORRHAGE [None]
